FAERS Safety Report 16987954 (Version 1)
Quarter: 2019Q4

REPORT INFORMATION
  Report Type: Report from Study
  Country: CA (occurrence: CA)
  Receive Date: 20191104
  Receipt Date: 20191104
  Transmission Date: 20200122
  Serious: Yes (Other)
  Sender: FDA-Public Use
  Company Number: CA-ORION CORPORATION ORION PHARMA-TREX2019-5057

PATIENT
  Age: 46 Year
  Sex: Male

DRUGS (14)
  1. COSENTYX [Suspect]
     Active Substance: SECUKINUMAB
     Indication: PSORIASIS
     Route: 058
  2. COSENTYX [Suspect]
     Active Substance: SECUKINUMAB
     Route: 058
  3. COAL TAR. [Concomitant]
     Active Substance: COAL TAR
     Route: 065
  4. TAZORAC [Concomitant]
     Active Substance: TAZAROTENE
     Route: 065
  5. METHOTREXATE (TRADE NAME UNKNOWN) [Suspect]
     Active Substance: METHOTREXATE
     Indication: PRODUCT USED FOR UNKNOWN INDICATION
     Route: 065
  6. AMEVIVE [Concomitant]
     Active Substance: ALEFACEPT
     Route: 030
  7. BETAMETHASONE W/CALCIPOTRIOL [Concomitant]
     Active Substance: BETAMETHASONE DIPROPIONATE\CALCIPOTRIENE HYDRATE
     Route: 065
  8. RAPTIVA [Concomitant]
     Active Substance: EFALIZUMAB
     Route: 058
  9. COSENTYX [Suspect]
     Active Substance: SECUKINUMAB
     Route: 058
  10. COSENTYX [Suspect]
     Active Substance: SECUKINUMAB
     Route: 058
  11. CICLOSPORIN [Suspect]
     Active Substance: CYCLOSPORINE
     Indication: PRODUCT USED FOR UNKNOWN INDICATION
     Route: 065
  12. ENBREL [Concomitant]
     Active Substance: ETANERCEPT
     Route: 065
  13. HUMIRA [Concomitant]
     Active Substance: ADALIMUMAB
     Route: 058
  14. COSENTYX [Suspect]
     Active Substance: SECUKINUMAB
     Route: 058

REACTIONS (5)
  - Skin lesion [Unknown]
  - Psoriasis [Unknown]
  - Therapeutic product effect incomplete [Unknown]
  - Psoriatic arthropathy [Unknown]
  - Product prescribing error [Unknown]
